FAERS Safety Report 18582570 (Version 1)
Quarter: 2020Q4

REPORT INFORMATION
  Report Type: Spontaneous
  Country: US (occurrence: US)
  Receive Date: 20201205
  Receipt Date: 20201205
  Transmission Date: 20210114
  Serious: No
  Sender: FDA-Public Use
  Company Number: US-LUPIN PHARMACEUTICALS INC.-2012-00774

PATIENT
  Sex: Female
  Weight: 66.68 kg

DRUGS (1)
  1. LEVONORGESTREL AND EE TABLET USP 0.1MG/0.02MG AND EE TABLET USP .01 MG [Suspect]
     Active Substance: ETHINYL ESTRADIOL\LEVONORGESTREL
     Indication: CONTRACEPTION
     Dosage: 1 DOSAGE FORM, QD
     Route: 048
     Dates: start: 201204

REACTIONS (3)
  - Vaginal haemorrhage [Recovered/Resolved]
  - Muscle spasms [Recovered/Resolved]
  - Product substitution issue [Recovered/Resolved]
